FAERS Safety Report 6365559-6 (Version None)
Quarter: 2009Q3

REPORT INFORMATION
  Report Type: 
  Country: None (occurrence: None)
  Receive Date: 20090919
  Receipt Date: 20090818
  Transmission Date: 20100115
  Serious: No
  Sender: FDA-Public Use
  Company Number: US-ABBOTT-09P-163-0591851-00

PATIENT
  Sex: Female
  Weight: 44.946 kg

DRUGS (2)
  1. HUMIRA [Suspect]
     Indication: PSORIASIS
     Dates: start: 20090720
  2. HUMIRA [Suspect]
     Dates: start: 20090824, end: 20090825

REACTIONS (12)
  - ARTHRALGIA [None]
  - DIARRHOEA [None]
  - HYPERSENSITIVITY [None]
  - INJECTION SITE PRURITUS [None]
  - INJECTION SITE SWELLING [None]
  - INJECTION SITE URTICARIA [None]
  - MALAISE [None]
  - NAUSEA [None]
  - PRURITUS GENERALISED [None]
  - RASH GENERALISED [None]
  - VIRAL INFECTION [None]
  - VOMITING [None]
